FAERS Safety Report 7152363-4 (Version None)
Quarter: 2010Q4

REPORT INFORMATION
  Report Type: 
  Country: None (occurrence: None)
  Receive Date: 20101209
  Receipt Date: 20101209
  Transmission Date: 20110411
  Serious: Yes (Other)
  Sender: FDA-Public Use
  Company Number: None

PATIENT
  Age: 87 Year
  Sex: Male
  Weight: 85.2762 kg

DRUGS (1)
  1. LYRICA [Suspect]
     Indication: POST HERPETIC NEURALGIA
     Dosage: 150 MG QDAY ORAL
     Route: 048
     Dates: start: 20090629, end: 20101115

REACTIONS (4)
  - EYE SWELLING [None]
  - EYELID OEDEMA [None]
  - HEAD DEFORMITY [None]
  - SWELLING FACE [None]
